FAERS Safety Report 13471359 (Version 2)
Quarter: 2017Q3

REPORT INFORMATION
  Report Type: Spontaneous
  Country: JP (occurrence: JP)
  Receive Date: 20170424
  Receipt Date: 20170705
  Transmission Date: 20171127
  Serious: Yes (Other)
  Sender: FDA-Public Use
  Company Number: PHJP2017JP013375

PATIENT

DRUGS (1)
  1. VOTRIENT [Suspect]
     Active Substance: PAZOPANIB HYDROCHLORIDE
     Indication: SOFT TISSUE SARCOMA
     Dosage: UNK
     Route: 048
     Dates: end: 201702

REACTIONS (3)
  - Intestinal perforation [Unknown]
  - Ileus [Unknown]
  - Tumour invasion [Unknown]

NARRATIVE: CASE EVENT DATE: 201702
